FAERS Safety Report 4344168-4 (Version None)
Quarter: 2004Q2

REPORT INFORMATION
  Report Type: 
  Country: None (occurrence: None)
  Receive Date: 20040419
  Receipt Date: 20040402
  Transmission Date: 20050107
  Serious: Yes (Death)
  Sender: FDA-Public Use
  Company Number: 2004-DE-02007UP

PATIENT

DRUGS (1)
  1. MIRAPEX [Suspect]
     Indication: PARKINSON'S DISEASE
     Dosage: 3 IN 1 D
     Route: 048
     Dates: start: 20031001, end: 20030208

REACTIONS (2)
  - HYPERTENSION [None]
  - PARKINSON'S DISEASE [None]
